FAERS Safety Report 23890707 (Version 1)
Quarter: 2024Q2

REPORT INFORMATION
  Report Type: Other
  Country: CA (occurrence: CA)
  Receive Date: 20240523
  Receipt Date: 20240523
  Transmission Date: 20240716
  Serious: No
  Sender: FDA-Public Use
  Company Number: CA-TOLMAR, INC.-24CA047906

PATIENT
  Age: 82 Year
  Sex: Male

DRUGS (5)
  1. ELIGARD [Suspect]
     Active Substance: LEUPROLIDE ACETATE
     Indication: Prostate cancer
     Dosage: 30 MILLIGRAM, Q 4 MONTH
     Route: 058
     Dates: start: 20240312
  2. ELIGARD [Suspect]
     Active Substance: LEUPROLIDE ACETATE
     Dosage: 30 MILLIGRAM, Q 4 MONTH
     Route: 058
     Dates: start: 20231121
  3. ELIGARD [Suspect]
     Active Substance: LEUPROLIDE ACETATE
     Dosage: 30 MILLIGRAM, Q 4 MONTH
     Route: 058
     Dates: start: 20240412
  4. DEVICE [Suspect]
     Active Substance: DEVICE
     Indication: Prostate cancer
     Dosage: UNK
  5. ERLEADA [Suspect]
     Active Substance: APALUTAMIDE
     Indication: Product used for unknown indication
     Dosage: UNK
     Dates: start: 20231220

REACTIONS (11)
  - Weight decreased [Unknown]
  - Decreased appetite [Unknown]
  - Balance disorder [Unknown]
  - Fall [Unknown]
  - Hypoaesthesia [Unknown]
  - Wrong technique in product usage process [Unknown]
  - Intercepted product preparation error [Unknown]
  - Inappropriate schedule of product administration [Recovered/Resolved]
  - Device leakage [Unknown]
  - Syringe issue [Unknown]
  - Fatigue [Unknown]

NARRATIVE: CASE EVENT DATE: 20231201
